FAERS Safety Report 6990022-9 (Version None)
Quarter: 2010Q3

REPORT INFORMATION
  Report Type: 
  Country: None (occurrence: None)
  Receive Date: 20100916
  Receipt Date: 20100413
  Transmission Date: 20110219
  Serious: Yes (Hospitalization)
  Sender: FDA-Public Use
  Company Number: FR-PFIZER INC-2010046141

PATIENT
  Sex: Male

DRUGS (6)
  1. LYRICA [Suspect]
     Indication: NEURALGIA
     Dosage: UNK
     Route: 048
     Dates: start: 20100323
  2. ULTRAVIST 150 [Suspect]
     Dosage: UNK
     Route: 042
     Dates: start: 20100331, end: 20100331
  3. OXYBUTYNIN [Suspect]
     Indication: DYSURIA
     Dosage: UNK
     Route: 048
     Dates: start: 20100323
  4. OMEXEL [Suspect]
     Indication: DYSURIA
     Dosage: UNK
     Route: 048
     Dates: start: 20100323
  5. ELIGARD [Concomitant]
     Indication: PROSTATE CANCER
     Dosage: 1 INJECTION EVERY 6 MONTHS
     Dates: start: 20080101
  6. ELIGARD [Concomitant]
     Indication: HORMONE THERAPY

REACTIONS (3)
  - DYSPHAGIA [None]
  - DYSPNOEA [None]
  - LOCALISED OEDEMA [None]
